FAERS Safety Report 6030911-5 (Version None)
Quarter: 2009Q1

REPORT INFORMATION
  Report Type: 
  Country: None (occurrence: None)
  Receive Date: 20090106
  Receipt Date: 20081222
  Transmission Date: 20090719
  Serious: Yes (Hospitalization)
  Sender: FDA-Public Use
  Company Number: KV200801374

PATIENT
  Age: 52 Year
  Sex: Male
  Weight: 127.9 kg

DRUGS (11)
  1. ISOSORBIDE MONONITRATE [Suspect]
     Indication: CHEST PAIN
     Dosage: 60 MG, 1/2 TAB QD, ORAL
     Route: 048
     Dates: start: 20030101, end: 20081202
  2. LISINOPRIL [Concomitant]
  3. NIACIN [Concomitant]
  4. GLIPIZIDE [Concomitant]
  5. PLAVIX [Concomitant]
  6. SYNTHROID [Concomitant]
  7. RANITIDINE [Concomitant]
  8. SIMVASTATIN [Concomitant]
  9. NORTRIPTYLINE HCL [Concomitant]
  10. ASPIRIN [Concomitant]
  11. ZOLOFT [Concomitant]

REACTIONS (5)
  - DIZZINESS [None]
  - HYPOTENSION [None]
  - LOSS OF CONSCIOUSNESS [None]
  - PRODUCT QUALITY ISSUE [None]
  - RENAL FAILURE ACUTE [None]
